FAERS Safety Report 6922239-3 (Version None)
Quarter: 2010Q3

REPORT INFORMATION
  Report Type: 
  Country: None (occurrence: None)
  Receive Date: 20100813
  Receipt Date: 20100803
  Transmission Date: 20110219
  Serious: Yes (Hospitalization)
  Sender: FDA-Public Use
  Company Number: ES-JNJFOC-20100800894

PATIENT
  Sex: Female
  Weight: 94 kg

DRUGS (9)
  1. GOLIMUMAB [Suspect]
     Indication: PSORIATIC ARTHROPATHY
     Route: 058
  2. GOLIMUMAB [Suspect]
     Route: 058
  3. GOLIMUMAB [Suspect]
     Route: 058
  4. PLACEBO [Suspect]
     Indication: PSORIATIC ARTHROPATHY
     Route: 058
  5. ENALAPRIL [Concomitant]
     Route: 048
  6. HYDROCHLOROTHIAZIDE [Concomitant]
     Route: 048
  7. OMEPRAZOLE [Concomitant]
     Route: 048
  8. RALOXIFENE HCL [Concomitant]
     Route: 048
  9. NAPROXEN [Concomitant]
     Route: 048

REACTIONS (1)
  - CELLULITIS [None]
